FAERS Safety Report 14430852 (Version 1)
Quarter: 2018Q1

REPORT INFORMATION
  Report Type: Report from Study
  Country: None (occurrence: US)
  Receive Date: 20180124
  Receipt Date: 20180124
  Transmission Date: 20180509
  Serious: Yes (Hospitalization)
  Sender: FDA-Public Use
  Company Number: US-ABBVIE-17K-163-2203948-00

PATIENT
  Sex: Male

DRUGS (4)
  1. VITAMIN D3 [Concomitant]
     Active Substance: CHOLECALCIFEROL
     Indication: PRODUCT USED FOR UNKNOWN INDICATION
  2. PREDNISONE. [Concomitant]
     Active Substance: PREDNISONE
     Indication: PRODUCT USED FOR UNKNOWN INDICATION
  3. VITAMIN D [Concomitant]
     Active Substance: CHOLECALCIFEROL
     Indication: PRODUCT USED FOR UNKNOWN INDICATION
  4. HUMIRA [Suspect]
     Active Substance: ADALIMUMAB
     Indication: COLITIS ULCERATIVE
     Route: 058
     Dates: start: 201708

REACTIONS (9)
  - Haemoglobin decreased [Recovered/Resolved]
  - Anaemia [Recovered/Resolved]
  - Clostridium difficile infection [Recovered/Resolved]
  - Weight decreased [Recovering/Resolving]
  - Diarrhoea [Recovered/Resolved]
  - Haemoglobin decreased [Recovered/Resolved]
  - Cellulitis [Recovered/Resolved]
  - Rectal haemorrhage [Recovering/Resolving]
  - Abscess [Recovered/Resolved]

NARRATIVE: CASE EVENT DATE: 2017
